FAERS Safety Report 4589375-0 (Version None)
Quarter: 2005Q1

REPORT INFORMATION
  Report Type: 
  Country: None (occurrence: None)
  Receive Date: 20050223
  Receipt Date: 20050209
  Transmission Date: 20050727
  Serious: Yes (Other)
  Sender: FDA-Public Use
  Company Number: TN-BRISTOL-MYERS SQUIBB COMPANY-12872008

PATIENT
  Age: 74 Year
  Sex: Female

DRUGS (7)
  1. COAPROVEL TABS 300MG/12.5MG [Suspect]
     Indication: HYPERTENSION
     Dosage: 1 DOSAGE FORM = 300 MG / 12.5 MG
     Route: 048
     Dates: start: 20031201, end: 20041201
  2. ZOLOFT [Concomitant]
     Indication: DEPRESSION
     Dosage: START DATE PRIOR TO 2003
     Route: 048
  3. LYSANXIA [Concomitant]
     Indication: DEPRESSION
     Dosage: START DATE PRIOR TO 2003
     Route: 048
  4. AMLOR [Concomitant]
     Indication: HYPERTENSION
     Route: 048
     Dates: start: 20031201
  5. HYPOTEN [Concomitant]
     Indication: HYPERTENSION
     Dosage: START DATE PRIOR TO 2003
     Route: 048
  6. ALLOPURINOL [Concomitant]
     Dosage: START DATE PRIOR TO 2003
     Route: 048
  7. LEVOTHYROXINE SODIUM [Concomitant]
     Dosage: START DATE PRIOR TO 2003
     Route: 048

REACTIONS (3)
  - CHOLESTASIS [None]
  - CYTOLYTIC HEPATITIS [None]
  - TRANSAMINASES INCREASED [None]
